FAERS Safety Report 14240529 (Version 3)
Quarter: 2018Q1

REPORT INFORMATION
  Report Type: Spontaneous
  Country: US (occurrence: US)
  Receive Date: 20171130
  Receipt Date: 20180320
  Transmission Date: 20180508
  Serious: Yes (Other)
  Sender: FDA-Public Use
  Company Number: US-BAYER-2017-227995

PATIENT
  Sex: Female

DRUGS (3)
  1. GADAVIST [Suspect]
     Active Substance: GADOBUTROL
     Indication: NUCLEAR MAGNETIC RESONANCE IMAGING BRAIN
     Dosage: UNK, ONCE
     Route: 042
     Dates: start: 20120905, end: 20120905
  2. GADAVIST [Suspect]
     Active Substance: GADOBUTROL
     Indication: VISION BLURRED
  3. GADAVIST [Suspect]
     Active Substance: GADOBUTROL
     Indication: HEADACHE

REACTIONS (3)
  - Headache [Not Recovered/Not Resolved]
  - Contrast media deposition [Not Recovered/Not Resolved]
  - Toxicity to various agents [Not Recovered/Not Resolved]

NARRATIVE: CASE EVENT DATE: 2012
